FAERS Safety Report 17515192 (Version 1)
Quarter: 2020Q1

REPORT INFORMATION
  Report Type: Spontaneous
  Country: BG (occurrence: BG)
  Receive Date: 20200309
  Receipt Date: 20200309
  Transmission Date: 20200409
  Serious: Yes (Hospitalization, Other)
  Sender: FDA-Public Use
  Company Number: BG-MICRO LABS LIMITED-ML2020-00580

PATIENT
  Age: 74 Year
  Sex: Female

DRUGS (3)
  1. VALSARTAN. [Suspect]
     Active Substance: VALSARTAN
     Indication: HYPERTENSION
     Dates: start: 201707, end: 201809
  2. AMLODIPINE/VALSARTAN [Suspect]
     Active Substance: AMLODIPINE\VALSARTAN
     Indication: HYPERTENSION
     Dosage: AMLODIPINE/VALSARTAN 5 MG/160 MG
     Dates: start: 201810
  3. OLMESARTAN MEDOXOMIL. [Suspect]
     Active Substance: OLMESARTAN MEDOXOMIL
     Indication: HYPERTENSION
     Dosage: OLMESARTAN DURATION HAD BEEN APPROXIMATELY 2-3 YEARS (BEFORE JULY 2017)

REACTIONS (1)
  - Malignant melanoma [Unknown]
